FAERS Safety Report 17882581 (Version 43)
Quarter: 2024Q1

REPORT INFORMATION
  Report Type: Report from Study
  Country: CA (occurrence: CA)
  Receive Date: 20200610
  Receipt Date: 20240110
  Transmission Date: 20240410
  Serious: Yes (Hospitalization, Other)
  Sender: FDA-Public Use
  Company Number: CA-HLS-202000229

PATIENT
  Age: 80 Year
  Sex: Female

DRUGS (4)
  1. CLOZARIL [Suspect]
     Active Substance: CLOZAPINE
     Indication: Product used for unknown indication
     Route: 048
     Dates: start: 20110713
  2. CLOZARIL [Suspect]
     Active Substance: CLOZAPINE
     Indication: Product used for unknown indication
     Route: 048
     Dates: start: 20220627
  3. CLOZARIL [Suspect]
     Active Substance: CLOZAPINE
     Indication: Product used for unknown indication
     Route: 048
     Dates: start: 20110713
  4. CLOZARIL [Suspect]
     Active Substance: CLOZAPINE
     Indication: Product used for unknown indication
     Dosage: 125 MG
     Route: 048
     Dates: start: 201108

REACTIONS (13)
  - Immature granulocyte count [Unknown]
  - Lymphocyte count increased [Unknown]
  - Neutrophil count increased [Recovered/Resolved]
  - Neutrophil count increased [Recovered/Resolved]
  - Blood pressure increased [Unknown]
  - Cardiomegaly [Unknown]
  - Fall [Unknown]
  - Malaise [Unknown]
  - Femoral neck fracture [Unknown]
  - Hip fracture [Unknown]
  - Pain [Unknown]
  - Gait inability [Unknown]
  - Leukocytosis [Not Recovered/Not Resolved]
